FAERS Safety Report 8491593-6 (Version None)
Quarter: 2012Q3

REPORT INFORMATION
  Report Type: 
  Country: None (occurrence: None)
  Receive Date: 20120706
  Receipt Date: 20120627
  Transmission Date: 20120928
  Serious: Yes (Death, Other)
  Sender: FDA-Public Use
  Company Number: US-JNJFOC-20120606590

PATIENT

DRUGS (5)
  1. DOXORUBICIN HCL [Suspect]
     Indication: HODGKIN'S DISEASE
     Dosage: 6 CYCLES, ON DAYS 1 AND 15 EVERY 28 DAYS
     Route: 042
  2. GEMCITABINE [Suspect]
     Dosage: ON DAYS 1 AND 15 EVERY 28 DAYS
     Route: 042
  3. GEMCITABINE [Suspect]
     Indication: HODGKIN'S DISEASE
     Dosage: 1000 M/M2 ON FIRST 6 , ON DAYS 1 AND 15 EVERY 28 DAYS
     Route: 042
  4. VINBLASTINE SULFATE [Suspect]
     Indication: HODGKIN'S DISEASE
     Dosage: 6 CYCLES, ON DAYS 1 AND 15 EVERY 28 DAYS
     Route: 042
  5. DOXORUBICIN HCL [Suspect]
     Dosage: 6 CYCLES, ON DAYS 1 AND 15 EVERY 28 DAYS
     Route: 065

REACTIONS (6)
  - FEBRILE NEUTROPENIA [None]
  - HODGKIN'S DISEASE [None]
  - PULMONARY TOXICITY [None]
  - NEUTROPENIA [None]
  - HODGKIN'S DISEASE RECURRENT [None]
  - ALANINE AMINOTRANSFERASE INCREASED [None]
